FAERS Safety Report 10094075 (Version 1)
Quarter: 2014Q2

REPORT INFORMATION
  Report Type: Spontaneous
  Country: DE (occurrence: DE)
  Receive Date: 20140422
  Receipt Date: 20140422
  Transmission Date: 20141212
  Serious: Yes (Hospitalization)
  Sender: FDA-Public Use
  Company Number: DE-BIOGENIDEC-2014BI036865

PATIENT
  Age: 41 Year
  Sex: Male

DRUGS (4)
  1. AVONEX [Suspect]
     Indication: RELAPSING-REMITTING MULTIPLE SCLEROSIS
     Route: 030
     Dates: start: 20121001
  2. IBUPROFEN [Concomitant]
     Indication: PAIN PROPHYLAXIS
     Dates: start: 20121001
  3. ACETYLSALICYLIC ACID [Concomitant]
     Indication: PRODUCT USED FOR UNKNOWN INDICATION
  4. LYRICA [Concomitant]
     Indication: PARAESTHESIA

REACTIONS (1)
  - Epistaxis [Recovered/Resolved with Sequelae]
